FAERS Safety Report 25042974 (Version 1)
Quarter: 2025Q1

REPORT INFORMATION
  Report Type: Spontaneous
  Country: US (occurrence: None)
  Receive Date: 20250305
  Receipt Date: 20250305
  Transmission Date: 20250408
  Serious: Yes (Death)
  Sender: INCYTE
  Company Number: US-002147023-NVSC2025US034991

PATIENT

DRUGS (11)
  1. JAKAFI [Suspect]
     Active Substance: RUXOLITINIB
     Indication: Cytokine release syndrome
     Route: 065
  2. JAKAFI [Suspect]
     Active Substance: RUXOLITINIB
     Indication: Immune effector cell-associated HLH-like syndrome
  3. ANAKINRA [Suspect]
     Active Substance: ANAKINRA
     Indication: Cytokine release syndrome
     Route: 065
  4. ANAKINRA [Suspect]
     Active Substance: ANAKINRA
     Indication: Immune effector cell-associated HLH-like syndrome
  5. ETANERCEPT [Suspect]
     Active Substance: ETANERCEPT
     Indication: Cytokine release syndrome
     Route: 065
  6. ETANERCEPT [Suspect]
     Active Substance: ETANERCEPT
     Indication: Immune effector cell-associated HLH-like syndrome
  7. TOCILIZUMAB [Concomitant]
     Active Substance: TOCILIZUMAB
     Indication: Cytokine release syndrome
     Route: 065
  8. TOCILIZUMAB [Concomitant]
     Active Substance: TOCILIZUMAB
     Indication: Immune effector cell-associated HLH-like syndrome
  9. EMAPALUMAB [Concomitant]
     Active Substance: EMAPALUMAB
     Indication: Cytokine release syndrome
     Route: 065
  10. EMAPALUMAB [Concomitant]
     Active Substance: EMAPALUMAB
     Indication: Immune effector cell-associated HLH-like syndrome
  11. DASATINIB [Concomitant]
     Active Substance: DASATINIB
     Indication: Cytokine release syndrome
     Route: 065

REACTIONS (2)
  - Cardiopulmonary failure [Fatal]
  - Drug ineffective for unapproved indication [Unknown]
